FAERS Safety Report 6240901-5 (Version None)
Quarter: 2009Q2

REPORT INFORMATION
  Report Type: 
  Country: None (occurrence: None)
  Receive Date: 20090619
  Receipt Date: 20090604
  Transmission Date: 20091009
  Serious: Yes (Other)
  Sender: FDA-Public Use
  Company Number: 2009AL003192

PATIENT
  Age: 67 Year
  Sex: Male

DRUGS (13)
  1. DIGOXIN [Suspect]
     Dosage: 0.25MG, PO
     Route: 048
     Dates: start: 20071201
  2. BISOPROLOL [Concomitant]
  3. CRESTOR [Concomitant]
  4. RAMIPRIL [Concomitant]
  5. WARFARIN SODIUM [Concomitant]
  6. PROPAFENONE HCL [Concomitant]
  7. MEPHYTON [Concomitant]
  8. COLCHICINE [Concomitant]
  9. TAMSULOSIN HCL [Concomitant]
  10. FINASTERIDE [Concomitant]
  11. DESONIDE [Concomitant]
  12. ALBUTEROL [Concomitant]
  13. CLARITHROMYCIN [Concomitant]

REACTIONS (6)
  - ECONOMIC PROBLEM [None]
  - INJURY [None]
  - SLEEP APNOEA SYNDROME [None]
  - SURGERY [None]
  - VISUAL IMPAIRMENT [None]
  - WEIGHT DECREASED [None]
